FAERS Safety Report 6259951-8 (Version None)
Quarter: 2009Q3

REPORT INFORMATION
  Report Type: 
  Country: None (occurrence: None)
  Receive Date: 20090706
  Receipt Date: 20090619
  Transmission Date: 20100115
  Serious: Yes (Hospitalization, Other)
  Sender: FDA-Public Use
  Company Number: POMP-11115

PATIENT
  Age: 25 Year
  Sex: Male
  Weight: 30 kg

DRUGS (1)
  1. MYOZYME [Suspect]
     Indication: GLYCOGEN STORAGE DISEASE TYPE II
     Dosage: 20 MG/KG, Q2W, INTRAVENOUS
     Route: 042
     Dates: start: 20061101

REACTIONS (12)
  - BACK PAIN [None]
  - BLOOD CREATININE DECREASED [None]
  - CALCULUS URETERIC [None]
  - DECUBITUS ULCER [None]
  - EOSINOPHIL PERCENTAGE DECREASED [None]
  - HYDRONEPHROSIS [None]
  - LYMPHOCYTE PERCENTAGE DECREASED [None]
  - MUSCULOSKELETAL DEFORMITY [None]
  - NEUTROPHIL PERCENTAGE INCREASED [None]
  - PYELONEPHRITIS [None]
  - RESPIRATORY FAILURE [None]
  - WHITE BLOOD CELL COUNT INCREASED [None]
